FAERS Safety Report 18893939 (Version 1)
Quarter: 2021Q1

REPORT INFORMATION
  Report Type: Spontaneous
  Country: CN (occurrence: CN)
  Receive Date: 20210215
  Receipt Date: 20210215
  Transmission Date: 20210420
  Serious: Yes (Other)
  Sender: FDA-Public Use
  Company Number: CN-009507513-2102CHN004280

PATIENT
  Age: 90 Year
  Sex: Male
  Weight: 70 kg

DRUGS (3)
  1. CRAVIT [Concomitant]
     Active Substance: LEVOFLOXACIN
     Indication: SYMPTOMATIC TREATMENT
     Dosage: 0.5 GRAM, QD
     Route: 041
     Dates: start: 20210111, end: 20210116
  2. SODIUM CHLORIDE. [Concomitant]
     Active Substance: SODIUM CHLORIDE
     Dosage: 50 MILLILITER
     Dates: start: 20210108, end: 20210116
  3. TIENAM [Suspect]
     Active Substance: CILASTATIN SODIUM\IMIPENEM
     Indication: SYMPTOMATIC TREATMENT
     Dosage: 0.5 GRAM, TID
     Dates: start: 20210108, end: 20210116

REACTIONS (3)
  - Seizure [Recovering/Resolving]
  - Gaze palsy [Unknown]
  - Cyanosis [Unknown]

NARRATIVE: CASE EVENT DATE: 20210116
